FAERS Safety Report 4571671-4 (Version None)
Quarter: 2005Q1

REPORT INFORMATION
  Report Type: 
  Country: None (occurrence: None)
  Receive Date: 20050207
  Receipt Date: 20050126
  Transmission Date: 20050727
  Serious: Yes (Hospitalization)
  Sender: FDA-Public Use
  Company Number: US-AMGEN-US109594

PATIENT
  Sex: Male

DRUGS (5)
  1. ENBREL [Suspect]
     Indication: RHEUMATOID ARTHRITIS
     Dates: start: 20031101
  2. LAMISIL [Concomitant]
  3. TRIAMCINOLONE [Concomitant]
     Route: 061
  4. METHOTREXATE [Concomitant]
     Dates: end: 20040301
  5. PSORALEN [Concomitant]

REACTIONS (8)
  - ASTHENIA [None]
  - DIPLOPIA [None]
  - DYSPHASIA [None]
  - EYE PAIN [None]
  - EYELID PTOSIS [None]
  - METASTASES TO CENTRAL NERVOUS SYSTEM [None]
  - NON-HODGKIN'S LYMPHOMA STAGE IV [None]
  - OPHTHALMOPLEGIA [None]
